FAERS Safety Report 11425398 (Version 1)
Quarter: 2015Q3

REPORT INFORMATION
  Report Type: Spontaneous
  Country: US (occurrence: US)
  Receive Date: 20150821
  Receipt Date: 20150821
  Transmission Date: 20151125
  Serious: No
  Sender: FDA-Public Use
  Company Number: US-ELI_LILLY_AND_COMPANY-US201103000589

PATIENT
  Sex: Female

DRUGS (3)
  1. HUMULIN R [Suspect]
     Active Substance: INSULIN HUMAN
     Dates: start: 20110301
  2. NOVOLIN R [Concomitant]
     Active Substance: INSULIN HUMAN
  3. HUMULIN 70/30 [Suspect]
     Active Substance: INSULIN HUMAN
     Dosage: UNK, UNK
     Dates: start: 201101, end: 20110301

REACTIONS (6)
  - Blood glucose abnormal [Unknown]
  - Hair texture abnormal [Unknown]
  - Vision blurred [Unknown]
  - Drug ineffective [Unknown]
  - Alopecia [Unknown]
  - Trichorrhexis [Unknown]
